FAERS Safety Report 13600988 (Version 1)
Quarter: 2017Q2

REPORT INFORMATION
  Report Type: Spontaneous
  Country: US (occurrence: US)
  Receive Date: 20170601
  Receipt Date: 20170601
  Transmission Date: 20170830
  Serious: No
  Sender: FDA-Public Use
  Company Number: US-AMGEN-USASP2017081627

PATIENT
  Age: 37 Year
  Sex: Female

DRUGS (1)
  1. ENBREL [Suspect]
     Active Substance: ETANERCEPT
     Indication: ANKYLOSING SPONDYLITIS
     Dosage: 50 MG, QWK
     Route: 058

REACTIONS (9)
  - Injection site rash [Unknown]
  - Paraesthesia [Unknown]
  - Crying [Unknown]
  - Pain [Unknown]
  - Dyspnoea [Unknown]
  - Injection site pain [Unknown]
  - Hypoaesthesia [Unknown]
  - Irritability [Unknown]
  - Headache [Unknown]
